FAERS Safety Report 6620225-4 (Version None)
Quarter: 2010Q1

REPORT INFORMATION
  Report Type: 
  Country: None (occurrence: None)
  Receive Date: 20100308
  Receipt Date: 20100308
  Transmission Date: 20100710
  Serious: No
  Sender: FDA-Public Use
  Company Number: None

PATIENT
  Sex: Male
  Weight: 113.3993 kg

DRUGS (1)
  1. INVEGA SUSTENNA [Suspect]
     Indication: SCHIZOPHRENIA
     Dates: start: 20091230

REACTIONS (8)
  - BLOOD GLUCOSE INCREASED [None]
  - DEPRESSION [None]
  - ERECTILE DYSFUNCTION [None]
  - LOSS OF CONSCIOUSNESS [None]
  - LOSS OF LIBIDO [None]
  - SUICIDAL IDEATION [None]
  - TARDIVE DYSKINESIA [None]
  - THROMBOSIS [None]
